FAERS Safety Report 4282182-8 (Version None)
Quarter: 2004Q1

REPORT INFORMATION
  Report Type: 
  Country: None (occurrence: None)
  Receive Date: 20040130
  Receipt Date: 20020130
  Transmission Date: 20041129
  Serious: Yes (Hospitalization, Other)
  Sender: FDA-Public Use
  Company Number: US-GLAXOSMITHKLINE-A0357829A

PATIENT
  Sex: Female

DRUGS (12)
  1. PAXIL [Suspect]
     Indication: ANXIETY
     Route: 048
     Dates: start: 19970618
  2. KLONOPIN [Concomitant]
     Dosage: .5MG TWICE PER DAY
  3. PENICILLIN [Concomitant]
  4. TYLENOL W/ CODEINE [Concomitant]
  5. IBUPROFEN [Concomitant]
  6. AMBIEN [Concomitant]
     Route: 048
  7. XANAX [Concomitant]
     Indication: ANXIETY
     Route: 048
  8. WELLBUTRIN [Concomitant]
     Route: 048
     Dates: start: 20020123
  9. IRON SULPHATE [Concomitant]
     Route: 048
     Dates: start: 20010514
  10. SENNA [Concomitant]
     Indication: CONSTIPATION
     Route: 048
  11. TOPAMAX [Concomitant]
  12. EFFEXOR [Concomitant]
     Route: 048
     Dates: start: 20020923

REACTIONS (40)
  - ABDOMINAL DISCOMFORT [None]
  - ABDOMINAL PAIN UPPER [None]
  - ABORTION SPONTANEOUS [None]
  - AGGRESSION [None]
  - AGITATION [None]
  - ANAEMIA [None]
  - ANGER [None]
  - ANXIETY [None]
  - BLOOD PRESSURE SYSTOLIC DECREASED [None]
  - CELLULITIS [None]
  - CONFUSIONAL STATE [None]
  - CONVULSION [None]
  - DEHYDRATION [None]
  - DEPENDENCE [None]
  - DIZZINESS [None]
  - DRUG DEPENDENCE [None]
  - DRUG TOLERANCE [None]
  - DRUG WITHDRAWAL SYNDROME [None]
  - GASTROENTERITIS [None]
  - INFLUENZA [None]
  - INSOMNIA [None]
  - MOTOR DYSFUNCTION [None]
  - NAUSEA [None]
  - NIGHTMARE [None]
  - OEDEMA PERIPHERAL [None]
  - OVARIAN CYST [None]
  - PHARYNGITIS [None]
  - PHARYNGOLARYNGEAL PAIN [None]
  - PULMONARY CONGESTION [None]
  - PYREXIA [None]
  - RASH [None]
  - SENSORY DISTURBANCE [None]
  - SUICIDAL IDEATION [None]
  - THROAT TIGHTNESS [None]
  - TREMOR [None]
  - UTERINE LEIOMYOMA [None]
  - VAGINITIS [None]
  - VIRAL INFECTION [None]
  - VISION BLURRED [None]
  - VOMITING [None]
